FAERS Safety Report 9812587 (Version 2)
Quarter: 2014Q1

REPORT INFORMATION
  Report Type: Report from Study
  Country: CA (occurrence: CA)
  Receive Date: 20140113
  Receipt Date: 20140113
  Transmission Date: 20141002
  Serious: Yes (Other)
  Sender: FDA-Public Use
  Company Number: CA-ROCHE-1272987

PATIENT
  Sex: 0

DRUGS (17)
  1. RITUXIMAB [Suspect]
     Indication: DIFFUSE LARGE B-CELL LYMPHOMA
     Route: 065
  2. CYCLOPHOSPHAMIDE [Interacting]
     Indication: DIFFUSE LARGE B-CELL LYMPHOMA
     Route: 065
  3. DOXORUBICIN [Interacting]
     Indication: DIFFUSE LARGE B-CELL LYMPHOMA
     Route: 065
  4. VINCRISTINE [Interacting]
     Indication: DIFFUSE LARGE B-CELL LYMPHOMA
     Route: 065
  5. PREDNISONE [Interacting]
     Indication: DIFFUSE LARGE B-CELL LYMPHOMA
     Route: 065
  6. RALTEGRAVIR [Interacting]
     Indication: HIV INFECTION
     Route: 065
  7. EFAVIRENZ [Interacting]
     Indication: HIV INFECTION
     Route: 065
  8. ZIDOVUDINE [Interacting]
     Indication: HIV INFECTION
     Route: 065
  9. STAVUDINE [Interacting]
     Indication: HIV INFECTION
     Route: 065
  10. DIDANOSINE [Interacting]
     Indication: HIV INFECTION
     Route: 065
  11. LOPINAVIR/RITONAVIR [Interacting]
     Indication: HIV INFECTION
     Route: 065
  12. RITONAVIR [Interacting]
     Indication: HIV INFECTION
     Route: 065
  13. NEVIRAPINE [Interacting]
     Indication: HIV INFECTION
     Route: 065
  14. DARUNAVIR [Interacting]
     Indication: HIV INFECTION
     Route: 065
  15. FOSAMPRENAVIR CALCIUM [Interacting]
     Indication: HIV INFECTION
     Route: 065
  16. INDINAVIR SULFATE [Interacting]
     Indication: HIV INFECTION
     Route: 065
  17. ATAZANAVIR SULFATE [Interacting]
     Indication: HIV INFECTION
     Route: 065

REACTIONS (17)
  - Anaemia [Unknown]
  - Renal failure acute [Unknown]
  - Alanine aminotransferase increased [Unknown]
  - Aspartate aminotransferase increased [Unknown]
  - Blood bilirubin increased [Unknown]
  - Febrile neutropenia [Unknown]
  - Cystitis noninfective [Unknown]
  - Vomiting [Unknown]
  - Infection [Unknown]
  - Myalgia [Unknown]
  - Convulsion [Unknown]
  - Haematuria [Unknown]
  - Thrombosis [Unknown]
  - Pulmonary embolism [Unknown]
  - Cerebral ischaemia [Unknown]
  - Tumour lysis syndrome [Unknown]
  - Drug interaction [Unknown]
